FAERS Safety Report 15595434 (Version 3)
Quarter: 2019Q1

REPORT INFORMATION
  Report Type: Spontaneous
  Country: JP (occurrence: JP)
  Receive Date: 20181107
  Receipt Date: 20190118
  Transmission Date: 20190417
  Serious: Yes (Other)
  Sender: FDA-Public Use
  Company Number: JP-TEVA-2018-JP-972965

PATIENT
  Age: 78 Year
  Sex: Female

DRUGS (2)
  1. MODIODAL TABLETS 100MG [Suspect]
     Active Substance: MODAFINIL
     Dosage: 300 MILLIGRAM DAILY;
     Route: 048
  2. MODIODAL TABLETS 100MG [Suspect]
     Active Substance: MODAFINIL
     Indication: NARCOLEPSY
     Dosage: 200 MILLIGRAM DAILY;
     Route: 048

REACTIONS (3)
  - Dysphagia [Recovered/Resolved]
  - Gastrostomy [Recovered/Resolved]
  - Somnolence [Unknown]
